FAERS Safety Report 20429918 (Version 1)
Quarter: 2022Q1

REPORT INFORMATION
  Report Type: Report from Study
  Country: CA (occurrence: CA)
  Receive Date: 20220204
  Receipt Date: 20220204
  Transmission Date: 20220423
  Serious: Yes (Life-Threatening, Hospitalization)
  Sender: FDA-Public Use
  Company Number: CA-SERVIER-S19003092

PATIENT

DRUGS (15)
  1. ONCASPAR [Suspect]
     Active Substance: PEGASPARGASE
     Indication: T-cell type acute leukaemia
     Dosage: 2500 IU/M2, EVERY 2 WEEKS UNTIL 15 DOSES POST INDUCTION
     Route: 042
     Dates: start: 20180923, end: 20190321
  2. VINCRISTINE [Suspect]
     Active Substance: VINCRISTINE
     Indication: T-cell type acute leukaemia
     Dosage: 2 MG/M2 DAY 1 OF EACH 3 WEEKS CYCLE
     Route: 042
     Dates: start: 20180921, end: 20190307
  3. DEXAMETHASONE [Suspect]
     Active Substance: DEXAMETHASONE
     Indication: T-cell type acute leukaemia
     Dosage: 18 MG/M2, DAY 1-5 OF EACH 3 WEEKS CYCLE
     Route: 048
     Dates: start: 20180918, end: 20190311
  4. MERCAPTOPURINE [Suspect]
     Active Substance: MERCAPTOPURINE
     Indication: T-cell type acute leukaemia
     Dosage: 50 MG/M2 DAY 1-14 OF EACH 3 WEEKS CYCLE
     Route: 048
     Dates: start: 20181022, end: 20190313
  5. DOXORUBICIN [Suspect]
     Active Substance: DOXORUBICIN
     Indication: T-cell type acute leukaemia
     Dosage: 30 MG/M2, DAY 1 OF EACH 3 WEEKS CYCLE
     Route: 042
     Dates: start: 20180927, end: 20190307
  6. DEXRAZOXANE [Suspect]
     Active Substance: DEXRAZOXANE
     Indication: T-cell type acute leukaemia
     Dosage: 300 MG/M2 DAY 1 OF EACH 3 WEEKS CYCLE
     Route: 042
     Dates: start: 20180927, end: 20190307
  7. METHOTREXATE [Suspect]
     Active Substance: METHOTREXATE
     Indication: T-cell type acute leukaemia
     Dosage: 12 MG 1ST DOSE GIVEN 9 WEEKS AFTER MOST RECENT DOSE IN CONSOLIDATION 2 AND THEN EVERY 18 WEEKS UNTIL
     Route: 037
     Dates: start: 20181005, end: 20190225
  8. CYTARABINE [Suspect]
     Active Substance: CYTARABINE
     Indication: T-cell type acute leukaemia
     Dosage: 40 MG 1ST DOSE GIVEN 9 WEEKS AFTER MOST RECENT DOSE IN CONSOLIDATION 2 AND THEN EVERY 18 WEEKS UNTIL
     Route: 037
     Dates: start: 20180918, end: 20190225
  9. HYDROCORTISONE [Suspect]
     Active Substance: HYDROCORTISONE
     Indication: T-cell type acute leukaemia
     Dosage: 15 MG 1ST DOSE GIVEN 9 WEEKS AFTER MOST RECENT DOSE IN CONSOLIDATION 2 AND THEN EVERY 18 WEEKS UNTIL
     Route: 037
     Dates: start: 20181005, end: 20190225
  10. TN UNSPECIFIED [Concomitant]
     Indication: Product used for unknown indication
     Dosage: UNK
     Route: 065
  11. TN UNSPECIFIED [Concomitant]
     Indication: Product used for unknown indication
     Dosage: UNK
     Route: 065
  12. NYSTATIN [Concomitant]
     Active Substance: NYSTATIN
     Indication: Product used for unknown indication
     Dosage: UNK
     Route: 065
  13. TN UNSPECIFIED [Concomitant]
     Indication: Product used for unknown indication
     Route: 065
  14. TN UNSPECIFIED [Concomitant]
     Indication: Product used for unknown indication
     Route: 065
  15. TN UNSPECIFIED [Concomitant]
     Indication: Product used for unknown indication
     Route: 065

REACTIONS (2)
  - Pneumonia [Not Recovered/Not Resolved]
  - Febrile neutropenia [Recovering/Resolving]

NARRATIVE: CASE EVENT DATE: 20190313
